FAERS Safety Report 5326387-3 (Version None)
Quarter: 2007Q2

REPORT INFORMATION
  Report Type: 
  Country: None (occurrence: None)
  Receive Date: 20070516
  Receipt Date: 20070511
  Transmission Date: 20071010
  Serious: Yes (Other)
  Sender: FDA-Public Use
  Company Number: B0470944A

PATIENT
  Age: 36 Year
  Sex: Male
  Weight: 78 kg

DRUGS (1)
  1. MALARONE [Suspect]
     Indication: PROPHYLAXIS
     Route: 048
     Dates: start: 20070422, end: 20070423

REACTIONS (4)
  - ANGIOEDEMA [None]
  - DYSPHAGIA [None]
  - PHARYNGOLARYNGEAL PAIN [None]
  - RASH PRURITIC [None]
